FAERS Safety Report 13116480 (Version 1)
Quarter: 2017Q1

REPORT INFORMATION
  Report Type: Spontaneous
  Country: US (occurrence: US)
  Receive Date: 20170116
  Receipt Date: 20170116
  Transmission Date: 20170428
  Serious: Yes (Hospitalization, Other)
  Sender: FDA-Public Use
  Company Number: US-ACCORD-047421

PATIENT
  Age: 50 Year
  Sex: Female

DRUGS (2)
  1. HYDROCORTISONE. [Suspect]
     Active Substance: HYDROCORTISONE
     Indication: BREAST CANCER METASTATIC
     Dosage: 50MG/DOSE AND TOOK TOTAL OF 4 DOSES (THE LAST TWO WEEKS PRIOR TO THE PRESENTATION)
     Route: 037
  2. METHOTREXATE. [Suspect]
     Active Substance: METHOTREXATE
     Indication: BREAST CANCER METASTATIC
     Dosage: TOTAL OF 4 DOSES (THE LAST TWO WEEKS PRIOR TO THE PRESENTATION)
     Route: 037

REACTIONS (1)
  - Secondary adrenocortical insufficiency [Recovering/Resolving]
